FAERS Safety Report 22366655 (Version 1)
Quarter: 2023Q2

REPORT INFORMATION
  Report Type: Spontaneous
  Country: US (occurrence: None)
  Receive Date: 20230524
  Receipt Date: 20230524
  Transmission Date: 20230721
  Serious: Yes (Other)
  Sender: FDA-Public Use
  Company Number: None

PATIENT
  Sex: Male
  Weight: 101.97 kg

DRUGS (17)
  1. TACROLIMUS [Suspect]
     Active Substance: TACROLIMUS
     Indication: Prophylaxis against transplant rejection
     Dosage: FREQUENCY : TWICE A DAY;?
     Route: 048
  2. MYCOPHENOLATE MOFETIL [Suspect]
     Active Substance: MYCOPHENOLATE MOFETIL
     Indication: Prophylaxis against transplant rejection
     Dosage: OTHER QUANTITY : 3 CAPSULE(S);?FREQUENCY : TWICE A DAY;?
     Route: 048
  3. TORSEMIDE [Concomitant]
     Active Substance: TORSEMIDE
  4. VITAMIN D3 [Concomitant]
     Active Substance: CHOLECALCIFEROL
  5. CALCIUM [Concomitant]
     Active Substance: CALCIUM
  6. ARIPIPRAZOLE [Concomitant]
     Active Substance: ARIPIPRAZOLE
  7. DOXAZOSIN [Concomitant]
     Active Substance: DOXAZOSIN MESYLATE
  8. POTASSIUM [Concomitant]
     Active Substance: POTASSIUM
  9. SPIRONOLACTONE [Concomitant]
     Active Substance: SPIRONOLACTONE
  10. TAMSULOSIN [Concomitant]
     Active Substance: TAMSULOSIN
  11. AMLODIPINE [Concomitant]
     Active Substance: AMLODIPINE BESYLATE
  12. MAGNESIUM OXIDE [Concomitant]
     Active Substance: MAGNESIUM OXIDE
  13. PREDNISONE [Concomitant]
     Active Substance: PREDNISONE
  14. ALLOPURINOL [Concomitant]
     Active Substance: ALLOPURINOL
  15. ESCITALOPRAM [Concomitant]
     Active Substance: ESCITALOPRAM OXALATE
  16. ASPIRIN [Concomitant]
     Active Substance: ASPIRIN
  17. ROSUVASTATIN [Concomitant]
     Active Substance: ROSUVASTATIN

REACTIONS (1)
  - Prostate cancer [None]
